FAERS Safety Report 18685412 (Version 2)
Quarter: 2021Q1

REPORT INFORMATION
  Report Type: Spontaneous
  Country: US (occurrence: US)
  Receive Date: 20201230
  Receipt Date: 20210106
  Transmission Date: 20210419
  Serious: Yes (Hospitalization, Other)
  Sender: FDA-Public Use
  Company Number: US-EMD SERONO-9208975

PATIENT
  Age: 64 Year
  Sex: Female
  Weight: 63.56 kg

DRUGS (12)
  1. FYCOMPA [Suspect]
     Active Substance: PERAMPANEL
     Dosage: THERAPY START DATE: SEP 2016
     Route: 048
     Dates: end: 2020
  2. CITALOPRAM [Suspect]
     Active Substance: CITALOPRAM HYDROBROMIDE
     Dosage: THERAPY START DATE: NOV 2016?WEANED OFF (DOSING AND FREQUENCY UNSPECIFIED)
     Route: 048
     Dates: end: 201611
  3. OXYBUTYNIN. [Concomitant]
     Active Substance: OXYBUTYNIN CHLORIDE
     Indication: URINARY INCONTINENCE
     Dosage: DOSE AND FREQUENCY UNKNOWN
     Route: 048
     Dates: start: 201609, end: 201705
  4. LOVASTATIN. [Concomitant]
     Active Substance: LOVASTATIN
     Indication: BLOOD CHOLESTEROL INCREASED
     Route: 048
  5. FYCOMPA [Suspect]
     Active Substance: PERAMPANEL
     Indication: PARTIAL SEIZURES
     Dosage: THERAPY START DATE: ?SEP?2016
     Route: 048
     Dates: end: 201609
  6. CITALOPRAM [Suspect]
     Active Substance: CITALOPRAM HYDROBROMIDE
     Indication: DEPRESSION
     Dosage: DOSE AND FREQUENCY UNKNOWN
     Route: 048
     Dates: end: 201611
  7. FYCOMPA [Suspect]
     Active Substance: PERAMPANEL
     Dosage: THERAPY START DATE: 2020
     Route: 048
  8. OMEPRAZOLE. [Concomitant]
     Active Substance: OMEPRAZOLE
     Indication: DYSPEPSIA
     Dosage: DOSE AND FREQUENCY UNKNOWN
     Route: 048
     Dates: start: 201705
  9. SERTRALINE [Concomitant]
     Active Substance: SERTRALINE HYDROCHLORIDE
     Indication: DEPRESSION
     Dates: start: 20170305
  10. PANTOPRAZOLE [Concomitant]
     Active Substance: PANTOPRAZOLE
     Indication: PRODUCT USED FOR UNKNOWN INDICATION
  11. METFORMIN [Suspect]
     Active Substance: METFORMIN HYDROCHLORIDE
     Indication: DIABETES MELLITUS
  12. FYCOMPA [Suspect]
     Active Substance: PERAMPANEL
     Dosage: THERAPY START DATE: 2020?DOSE WAS DECREASED
     Route: 048

REACTIONS (20)
  - Mood altered [Recovered/Resolved]
  - Cyst [Recovered/Resolved]
  - Hiatus hernia [Not Recovered/Not Resolved]
  - Seborrhoeic dermatitis [Not Recovered/Not Resolved]
  - Urticaria [Not Recovered/Not Resolved]
  - Somnolence [Recovered/Resolved]
  - Gait disturbance [Recovered/Resolved]
  - Vertigo [Recovered/Resolved]
  - Disturbance in attention [Unknown]
  - Seizure [Unknown]
  - Skin discolouration [Not Recovered/Not Resolved]
  - Dry skin [Not Recovered/Not Resolved]
  - Alopecia [Unknown]
  - Fall [Recovered/Resolved]
  - Hypertrichosis [Not Recovered/Not Resolved]
  - Dysarthria [Unknown]
  - Paranoia [Recovered/Resolved]
  - Furuncle [Not Recovered/Not Resolved]
  - Weight increased [Not Recovered/Not Resolved]
  - Blood glucose increased [Unknown]

NARRATIVE: CASE EVENT DATE: 2016
